FAERS Safety Report 22119739 (Version 1)
Quarter: 2023Q1

REPORT INFORMATION
  Report Type: Spontaneous
  Country: US (occurrence: US)
  Receive Date: 20230321
  Receipt Date: 20230321
  Transmission Date: 20230417
  Serious: No
  Sender: FDA-Public Use
  Company Number: US-MYLANLABS-2023M1028703

PATIENT
  Sex: Female
  Weight: 88.45 kg

DRUGS (2)
  1. ATORVASTATIN [Suspect]
     Active Substance: ATORVASTATIN
     Indication: Blood cholesterol abnormal
     Dosage: 5 MILLIGRAM, 3XW  (EVERY OTHER DAY 3 TIMES A WEEK)
     Route: 065
  2. PAXLOVID [Concomitant]
     Active Substance: NIRMATRELVIR\RITONAVIR
     Indication: COVID-19
     Dosage: 300 MILLIGRAM, BID (ONCE IN MORNING AND ONCE IN EVENING)
     Route: 048

REACTIONS (1)
  - Off label use [Unknown]
